FAERS Safety Report 11778693 (Version 13)
Quarter: 2016Q1

REPORT INFORMATION
  Report Type: Report from Study
  Country: BE (occurrence: BE)
  Receive Date: 20151125
  Receipt Date: 20160218
  Transmission Date: 20160525
  Serious: Yes (Hospitalization, Other)
  Sender: FDA-Public Use
  Company Number: BE-ABBVIE-15P-013-1505629-00

PATIENT
  Sex: Male

DRUGS (27)
  1. DUODOPA [Suspect]
     Active Substance: CARBIDOPA\LEVODOPA
     Indication: PARKINSON^S DISEASE
     Dosage: AM=9.5ML; CD=4.4ML/HR DURING 16HRS; ED=3ML
     Route: 050
     Dates: start: 20151005, end: 20151008
  2. DUODOPA [Suspect]
     Active Substance: CARBIDOPA\LEVODOPA
     Dosage: AM=9.5ML; CD=4.8ML/H FOR 16HRS; ED=3ML
     Route: 050
     Dates: start: 20151204, end: 20151208
  3. PROLOPA [Concomitant]
     Active Substance: BENSERAZIDE\LEVODOPA
     Indication: PRODUCT USED FOR UNKNOWN INDICATION
     Dosage: FORM STRENGTH: 200MG/50MG; UNIT DOSE : 0.5 TABLET
     Route: 048
  4. STALEVO [Concomitant]
     Active Substance: CARBIDOPA\ENTACAPONE\LEVODOPA
     Dosage: FORM STRENGTH: 150MG/37.5MG/200MG; UNIT DOSE : 1 TABLET
     Route: 048
  5. PRIMPERAN [Concomitant]
     Active Substance: METOCLOPRAMIDE HYDROCHLORIDE
     Indication: PRODUCT USED FOR UNKNOWN INDICATION
     Route: 065
  6. DUODOPA [Suspect]
     Active Substance: CARBIDOPA\LEVODOPA
     Dosage: AM=9.5ML; CD=4.5ML/H FOR 16HRS; ED=3ML
     Route: 050
     Dates: start: 20151123, end: 20151204
  7. DUODOPA [Suspect]
     Active Substance: CARBIDOPA\LEVODOPA
     Dosage: AM=9.5ML; CD=4.5ML/H FOR 16HRS; ED=3ML
     Route: 050
     Dates: start: 20151208, end: 20151213
  8. DUODOPA [Suspect]
     Active Substance: CARBIDOPA\LEVODOPA
     Dosage: AM=9.5ML ; CD=4.7ML/HR DURING 16HRS; ED=3ML
     Route: 050
     Dates: start: 20151009, end: 20151123
  9. PROLOPA [Concomitant]
     Active Substance: BENSERAZIDE\LEVODOPA
     Dosage: FORM STRENGTH: 200MG/50MG; UNIT DOSE : 0.5 TABLET
     Route: 048
  10. ASAFLOW [Concomitant]
     Active Substance: ASPIRIN
     Indication: PRODUCT USED FOR UNKNOWN INDICATION
     Route: 065
  11. TRITACE [Concomitant]
     Active Substance: RAMIPRIL
     Indication: PRODUCT USED FOR UNKNOWN INDICATION
     Route: 048
  12. RIVOTRIL [Concomitant]
     Active Substance: CLONAZEPAM
     Indication: PRODUCT USED FOR UNKNOWN INDICATION
     Route: 048
  13. DUODOPA [Suspect]
     Active Substance: CARBIDOPA\LEVODOPA
     Dosage: AM=9.5ML; CD=5ML/HR DURING 16HRS;ED=3ML
     Route: 050
     Dates: start: 20151123, end: 20151126
  14. MIRAPEXIN [Concomitant]
     Active Substance: PRAMIPEXOLE
     Indication: PRODUCT USED FOR UNKNOWN INDICATION
     Route: 048
  15. STALEVO [Concomitant]
     Active Substance: CARBIDOPA\ENTACAPONE\LEVODOPA
     Indication: PRODUCT USED FOR UNKNOWN INDICATION
     Dosage: FORM STRENGTH: 150MG/37.5MG/200MG;
     Route: 048
  16. STALEVO [Concomitant]
     Active Substance: CARBIDOPA\ENTACAPONE\LEVODOPA
     Dosage: FORM STRENGTH: 150MG/37.5MG/200MG; UNIT DOSE : 1 TABLET
     Route: 048
  17. GLUCOPHAGE [Concomitant]
     Active Substance: METFORMIN HYDROCHLORIDE
     Indication: PRODUCT USED FOR UNKNOWN INDICATION
     Route: 065
  18. SEDACID [Concomitant]
     Indication: PRODUCT USED FOR UNKNOWN INDICATION
     Route: 065
  19. DUODOPA [Suspect]
     Active Substance: CARBIDOPA\LEVODOPA
     Dosage: AM=8.5ML; CD=4.3ML/HR DURING 16HRS; ED=3ML
     Route: 050
     Dates: start: 20151213, end: 201602
  20. MIRAPEXIN [Concomitant]
     Active Substance: PRAMIPEXOLE
     Route: 048
     Dates: start: 20151102
  21. MIRAPEXIN [Concomitant]
     Active Substance: PRAMIPEXOLE
     Route: 048
     Dates: start: 201511
  22. TRAMADOL. [Concomitant]
     Active Substance: TRAMADOL
     Indication: PRODUCT USED FOR UNKNOWN INDICATION
     Route: 065
  23. ISOTEN [Concomitant]
     Indication: PRODUCT USED FOR UNKNOWN INDICATION
     Route: 065
  24. XANAX [Concomitant]
     Active Substance: ALPRAZOLAM
     Indication: PRODUCT USED FOR UNKNOWN INDICATION
     Dosage: IF NECESARRY (MAXIMUM 3 TIMES/DAY)
     Route: 048
  25. MIRAPEXIN [Concomitant]
     Active Substance: PRAMIPEXOLE
     Route: 048
     Dates: end: 201511
  26. CRESTOR [Concomitant]
     Active Substance: ROSUVASTATIN CALCIUM
     Indication: PRODUCT USED FOR UNKNOWN INDICATION
     Route: 065
  27. DUODOPA [Suspect]
     Active Substance: CARBIDOPA\LEVODOPA
     Dosage: AM=9.5ML; CD=4.4ML/HR DURING 16HRS; ED=3ML
     Route: 050
     Dates: start: 20151008, end: 20151009

REACTIONS (10)
  - Cachexia [Unknown]
  - Stoma site discharge [Unknown]
  - Nausea [Recovering/Resolving]
  - Stoma site infection [Unknown]
  - Mobility decreased [Unknown]
  - Overgrowth bacterial [Unknown]
  - Nausea [Recovering/Resolving]
  - Weight decreased [Not Recovered/Not Resolved]
  - Abdominal pain [Not Recovered/Not Resolved]
  - Device intolerance [Recovered/Resolved]

NARRATIVE: CASE EVENT DATE: 2015
